FAERS Safety Report 8172094-1 (Version None)
Quarter: 2012Q1

REPORT INFORMATION
  Report Type: 
  Country: None (occurrence: None)
  Receive Date: 20120228
  Receipt Date: 20120213
  Transmission Date: 20120608
  Serious: Yes (Death, Other)
  Sender: FDA-Public Use
  Company Number: ZA-ASTRAZENECA-2012SE09183

PATIENT
  Age: 8 Year
  Sex: Female

DRUGS (1)
  1. NEXIAM IV [Suspect]
     Route: 042

REACTIONS (6)
  - DEATH [None]
  - APHAGIA [None]
  - PNEUMONIA ASPIRATION [None]
  - OFF LABEL USE [None]
  - HAEMATOCHEZIA [None]
  - ASTHENIA [None]
